FAERS Safety Report 9816881 (Version 1)
Quarter: 2014Q1

REPORT INFORMATION
  Report Type: Spontaneous
  Country: US (occurrence: US)
  Receive Date: 20140114
  Receipt Date: 20140114
  Transmission Date: 20141002
  Serious: No
  Sender: FDA-Public Use
  Company Number: US-BAUSCH-BL-2013-006741

PATIENT
  Age: 71 Year
  Sex: Female

DRUGS (5)
  1. LOTEMAX (LOTEPREDNOL ETABONATE OPHTHALMIC GEL 0.5%) [Suspect]
     Indication: DRY EYE
     Dosage: 1 TO 2 DROPS; RIGHT EYE; TWICE DAILY
     Route: 047
     Dates: start: 201311, end: 201311
  2. LOTEMAX (LOTEPREDNOL ETABONATE OPHTHALMIC GEL 0.5%) [Suspect]
     Dosage: 1 TO 2 DROPS; LEFT EYE; TWICE DAILY
     Route: 047
     Dates: start: 201311, end: 201311
  3. LOTEMAX (LOTEPREDNOL ETABONATE OPHTHALMIC GEL 0.5%) [Suspect]
     Dosage: 1 TO 2 DROPS; RIGHT EYE; ONCE DAILY
     Route: 047
     Dates: start: 201311
  4. LOTEMAX (LOTEPREDNOL ETABONATE OPHTHALMIC GEL 0.5%) [Suspect]
     Dosage: 1 TO 2 DROPS; LEFT EYE; ONCE DAILY
     Route: 047
     Dates: start: 201311
  5. CRESTOR [Concomitant]

REACTIONS (2)
  - Off label use [Not Recovered/Not Resolved]
  - Vertigo [Not Recovered/Not Resolved]
